FAERS Safety Report 9252108 (Version 2)
Quarter: 2013Q3

REPORT INFORMATION
  Report Type: Spontaneous
  Country: US (occurrence: US)
  Receive Date: 20130424
  Receipt Date: 20130705
  Transmission Date: 20140515
  Serious: Yes (Other)
  Sender: FDA-Public Use
  Company Number: US-PFIZER INC-2013124709

PATIENT
  Age: 69 Year
  Sex: Male
  Weight: 97.5 kg

DRUGS (6)
  1. LYRICA [Suspect]
     Indication: DIABETIC NEUROPATHY
     Dosage: 150 MG, 1X/DAY
     Route: 048
     Dates: start: 2013, end: 2013
  2. LYRICA [Suspect]
     Dosage: 150 MG, 2X/DAY
     Route: 048
     Dates: start: 2013
  3. RANITIDINE [Concomitant]
     Dosage: 150 MG, UNK
  4. LANTUS [Concomitant]
     Dosage: UNK
  5. NOVOLOG [Concomitant]
     Dosage: UNK
  6. METHOTREXATE [Concomitant]
     Indication: PSORIASIS
     Dosage: UNK

REACTIONS (2)
  - Diabetes mellitus [Unknown]
  - Blood glucose increased [Unknown]
